FAERS Safety Report 15235990 (Version 4)
Quarter: 2018Q4

REPORT INFORMATION
  Report Type: Spontaneous
  Country: CH (occurrence: CH)
  Receive Date: 20180803
  Receipt Date: 20181008
  Transmission Date: 20190204
  Serious: Yes (Hospitalization, Other)
  Sender: FDA-Public Use
  Company Number: CH-LUPIN PHARMACEUTICALS INC.-2018-05488

PATIENT
  Age: 48 Year
  Sex: Female

DRUGS (10)
  1. PARACETAMOL TABLET [Suspect]
     Active Substance: ACETAMINOPHEN
     Indication: PRODUCT USED FOR UNKNOWN INDICATION
     Dosage: 65 G, UNK, IMMEDIATE RELEASE TABLET
     Route: 048
     Dates: start: 2016
  2. QUETIAPINE FUMARATE. [Suspect]
     Active Substance: QUETIAPINE FUMARATE
     Dosage: 1 G, UNK, IMMEDIATE RELEASE
     Route: 048
     Dates: start: 2017
  3. PIPAMPERONE [Concomitant]
     Active Substance: PIPAMPERONE
     Indication: PRODUCT USED FOR UNKNOWN INDICATION
     Dosage: UNK, IMMEDIATE RELEASE
     Route: 048
     Dates: start: 2016
  4. PARACETAMOL TABLET [Suspect]
     Active Substance: ACETAMINOPHEN
     Dosage: 65 G, UNK, IMMEDIATE RELEASE TABLET
     Route: 048
     Dates: start: 2017
  5. ALCOHOL. [Concomitant]
     Active Substance: ALCOHOL
     Indication: PRODUCT USED FOR UNKNOWN INDICATION
     Dosage: UNK, 1.42 %
     Route: 048
     Dates: start: 2016
  6. TRAMADOL. [Concomitant]
     Active Substance: TRAMADOL
     Indication: PRODUCT USED FOR UNKNOWN INDICATION
     Dosage: 800 MG, UNK, EXTENDED RELEASE
     Route: 048
     Dates: start: 2017
  7. QUETIAPINE FUMARATE EXTENDED-RELEASE [Suspect]
     Active Substance: QUETIAPINE FUMARATE
     Indication: PRODUCT USED FOR UNKNOWN INDICATION
     Dosage: 2.5 G, UNK
     Route: 048
     Dates: start: 2016
  8. DICLOFENAC [Concomitant]
     Active Substance: DICLOFENAC
     Indication: PRODUCT USED FOR UNKNOWN INDICATION
     Dosage: 1.5 G, UNK, EXTENDED RELEASE
     Route: 048
     Dates: start: 2017
  9. ALCOHOL. [Concomitant]
     Active Substance: ALCOHOL
     Dosage: UNK, 1.91 %
     Route: 048
     Dates: start: 2017
  10. QUETIAPINE FUMARATE. [Suspect]
     Active Substance: QUETIAPINE FUMARATE
     Indication: PRODUCT USED FOR UNKNOWN INDICATION
     Dosage: 1 G, UNK, IMMEDIATE RELEASE
     Route: 048
     Dates: start: 2016

REACTIONS (11)
  - Intentional overdose [Unknown]
  - Bezoar [Recovered/Resolved]
  - Drug interaction [Recovered/Resolved]
  - Toxicity to various agents [Unknown]
  - Coma [Recovered/Resolved]
  - Hypotonia [Recovered/Resolved]
  - Malabsorption [Recovered/Resolved]
  - Hepatotoxicity [Recovered/Resolved]
  - Hypotension [Recovered/Resolved]
  - Somnolence [Recovered/Resolved]
  - Oxygen saturation decreased [Recovered/Resolved]

NARRATIVE: CASE EVENT DATE: 2016
